FAERS Safety Report 5652050-5 (Version None)
Quarter: 2008Q1

REPORT INFORMATION
  Report Type: 
  Country: None (occurrence: None)
  Receive Date: 20080305
  Receipt Date: 20080226
  Transmission Date: 20080703
  Serious: Yes (Other)
  Sender: FDA-Public Use
  Company Number: US-PFIZER INC-2008018979

PATIENT
  Sex: Female
  Weight: 45.8 kg

DRUGS (2)
  1. SOLU-MEDROL [Suspect]
     Indication: ASTHMA
     Dosage: DAILY DOSE:125MG
     Route: 030
  2. ALBUTEROL [Concomitant]
     Indication: ASTHMA

REACTIONS (7)
  - BLOOD PRESSURE INCREASED [None]
  - FINGER DEFORMITY [None]
  - HEART RATE INCREASED [None]
  - MUSCULOSKELETAL STIFFNESS [None]
  - SENSORY LOSS [None]
  - SKIN DISCOLOURATION [None]
  - SKIN FISSURES [None]
